FAERS Safety Report 7351004-0 (Version None)
Quarter: 2011Q1

REPORT INFORMATION
  Report Type: 
  Country: None (occurrence: None)
  Receive Date: 20110314
  Receipt Date: 20110301
  Transmission Date: 20110831
  Serious: Yes (Hospitalization)
  Sender: FDA-Public Use
  Company Number: PHHY2011GB16676

PATIENT
  Age: 76 Year
  Sex: Male

DRUGS (4)
  1. CAPECITABINE [Concomitant]
     Indication: RECTAL CANCER
     Dosage: 4 CYCLES OF WEEKLY
  2. AMLODIPINE [Concomitant]
  3. FLUOROURACIL [Suspect]
     Route: 040
  4. FOLINIC ACID [Concomitant]
     Indication: RECTAL CANCER
     Dosage: 4 CYCLES OF WEEKLY

REACTIONS (7)
  - CORONARY ARTERY DISEASE [None]
  - ARTERIOSPASM CORONARY [None]
  - ELECTROCARDIOGRAM ST SEGMENT ELEVATION [None]
  - FEMUR FRACTURE [None]
  - CHEST PAIN [None]
  - TROPONIN T INCREASED [None]
  - ELECTROCARDIOGRAM T WAVE ABNORMAL [None]
